FAERS Safety Report 4999733-8 (Version None)
Quarter: 2006Q2

REPORT INFORMATION
  Report Type: 
  Country: None (occurrence: None)
  Receive Date: 20060511
  Receipt Date: 20060508
  Transmission Date: 20061013
  Serious: Yes (Other)
  Sender: FDA-Public Use
  Company Number: US-GLAXOSMITHKLINE-A0604659A

PATIENT
  Age: 67 Year
  Sex: Female

DRUGS (11)
  1. AVANDIA [Suspect]
     Indication: DIABETES MELLITUS NON-INSULIN-DEPENDENT
     Dosage: 4MG PER DAY
     Route: 048
     Dates: start: 20060101, end: 20060401
  2. METFORMIN [Concomitant]
  3. METOLAZONE [Concomitant]
  4. ISOSORBIDE MONONITRATE [Concomitant]
  5. METOPROLOL [Concomitant]
  6. ASPIRIN [Concomitant]
  7. BENICAR [Concomitant]
  8. LASIX [Concomitant]
  9. AMITRIPTYLINE HCL [Concomitant]
  10. CENTRUM [Concomitant]
  11. OXYGEN [Concomitant]

REACTIONS (2)
  - DIZZINESS [None]
  - SYNCOPE [None]
